FAERS Safety Report 10042895 (Version 1)
Quarter: 2014Q1

REPORT INFORMATION
  Report Type: Not Available
  Country: US (occurrence: US)
  Receive Date: 20140328
  Receipt Date: 20140328
  Transmission Date: 20141002
  Serious: Yes (Other)
  Sender: FDA-Public Use
  Company Number: US-LUPIN PHARMACEUTICALS INC.-E2B_00001857

PATIENT
  Age: 53 Year
  Sex: Female
  Weight: 81.72 kg

DRUGS (6)
  1. SIMVASTATIN TABLETS USP 40 MG [Suspect]
     Indication: HYPERCHOLESTEROLAEMIA
  2. LEVOTHYROXINE [Concomitant]
     Indication: HYPOTHYROIDISM
  3. QUINAPRIL [Concomitant]
     Indication: PROPHYLAXIS
  4. LANTUS INSULIN [Concomitant]
     Indication: DIABETES MELLITUS
     Route: 058
  5. NOVOLOG [Concomitant]
     Indication: DIABETES MELLITUS
     Dosage: VARIES
     Route: 058
  6. TIMOPTIC [Concomitant]
     Indication: GLAUCOMA
     Dosage: 1 DROP TWICE A DAY
     Route: 047

REACTIONS (1)
  - Coeliac disease [Not Recovered/Not Resolved]
